FAERS Safety Report 10382573 (Version 1)
Quarter: 2014Q3

REPORT INFORMATION
  Report Type: Spontaneous
  Country: US (occurrence: US)
  Receive Date: 20140813
  Receipt Date: 20140813
  Transmission Date: 20150326
  Serious: No
  Sender: FDA-Public Use
  Company Number: US-SA-2013SA099400

PATIENT
  Sex: Female

DRUGS (2)
  1. MULTAQ [Suspect]
     Active Substance: DRONEDARONE
     Route: 048
  2. WARFARIN [Concomitant]
     Active Substance: WARFARIN

REACTIONS (8)
  - Scab [Unknown]
  - Pruritus [Unknown]
  - Scratch [Unknown]
  - Constipation [Unknown]
  - Rash pruritic [Unknown]
  - Pain [Unknown]
  - Swelling face [Unknown]
  - Haemorrhage [Unknown]
